FAERS Safety Report 19018914 (Version 3)
Quarter: 2021Q2

REPORT INFORMATION
  Report Type: Spontaneous
  Country: US (occurrence: US)
  Receive Date: 20210317
  Receipt Date: 20210617
  Transmission Date: 20210717
  Serious: No
  Sender: FDA-Public Use
  Company Number: US-SA-2021SA067361

PATIENT
  Age: 22 Year
  Sex: Female

DRUGS (6)
  1. ALBUTEROL SULFATE HFA [Concomitant]
     Active Substance: ALBUTEROL SULFATE
  2. DUPIXENT [Suspect]
     Active Substance: DUPILUMAB
     Indication: DERMATITIS ATOPIC
     Dosage: 300 MG, QOW
     Route: 058
     Dates: start: 202102
  3. MELOXICAM. [Concomitant]
     Active Substance: MELOXICAM
  4. MELATONIN [Concomitant]
     Active Substance: MELATONIN
  5. VIIBRYD [Concomitant]
     Active Substance: VILAZODONE HYDROCHLORIDE
  6. DIPHENHYDRAMINE. [Concomitant]
     Active Substance: DIPHENHYDRAMINE

REACTIONS (8)
  - Eczema [Unknown]
  - Product dose omission issue [Unknown]
  - Vocal cord dysfunction [Unknown]
  - Product storage error [Unknown]
  - Condition aggravated [Unknown]
  - Pruritus [Unknown]
  - Insomnia [Unknown]
  - Rebound eczema [Unknown]

NARRATIVE: CASE EVENT DATE: 2021
